FAERS Safety Report 10018014 (Version 2)
Quarter: 2014Q2

REPORT INFORMATION
  Report Type: Spontaneous
  Country: US (occurrence: US)
  Receive Date: 20140318
  Receipt Date: 20140514
  Transmission Date: 20141212
  Serious: Yes (Other)
  Sender: FDA-Public Use
  Company Number: US-PERRIGO-14US002468

PATIENT
  Sex: Female
  Weight: 118.82 kg

DRUGS (4)
  1. IBUPROFEN 200 MG 604 [Suspect]
     Indication: BACK PAIN
     Dosage: 200 MG, PRN
     Route: 048
     Dates: start: 1998, end: 2012
  2. PAXIL                              /00830802/ [Concomitant]
     Indication: DEPRESSION
     Dosage: UNKNOWN, UNKNOWN
     Route: 048
     Dates: start: 2006
  3. IRON [Concomitant]
     Indication: SUPPLEMENTATION THERAPY
     Dosage: UNKNOWN, UNKNOWN
     Route: 065
  4. SIMVASTATIN [Concomitant]
     Indication: BLOOD CHOLESTEROL INCREASED
     Dosage: UNKNOWN, UNKNOWN
     Route: 048
     Dates: start: 2006

REACTIONS (4)
  - Renal failure [Not Recovered/Not Resolved]
  - Blindness [Recovering/Resolving]
  - Erosive oesophagitis [Not Recovered/Not Resolved]
  - Blood parathyroid hormone increased [Not Recovered/Not Resolved]
